FAERS Safety Report 5626486-2 (Version None)
Quarter: 2008Q1

REPORT INFORMATION
  Report Type: 
  Country: None (occurrence: None)
  Receive Date: 20080211
  Receipt Date: 20080123
  Transmission Date: 20080703
  Serious: Yes (Death)
  Sender: FDA-Public Use
  Company Number: 2004JP001945

PATIENT
  Age: 23 Year
  Sex: Female

DRUGS (3)
  1. PROGRAF [Suspect]
     Indication: LIVER TRANSPLANT
     Dates: start: 20020426, end: 20020901
  2. CYCLOPHOSPHAMIDE [Concomitant]
  3. PROSTAGLANDIN I2 (EPOPROSTENOL) [Concomitant]

REACTIONS (4)
  - BILIARY ANASTOMOSIS COMPLICATION [None]
  - CHOLANGITIS [None]
  - MULTI-ORGAN FAILURE [None]
  - THROMBOTIC MICROANGIOPATHY [None]
